FAERS Safety Report 17582897 (Version 1)
Quarter: 2020Q1

REPORT INFORMATION
  Report Type: Other
  Country: US (occurrence: US)
  Receive Date: 20200325
  Receipt Date: 20200325
  Transmission Date: 20200409
  Serious: No
  Sender: FDA-Public Use
  Company Number: US-VERASTEM-2019-00400

PATIENT

DRUGS (2)
  1. COPIKTRA [Suspect]
     Active Substance: DUVELISIB
     Indication: CHRONIC LYMPHOCYTIC LEUKAEMIA
     Dosage: 15 MG, BID
     Route: 048
     Dates: start: 20191111
  2. COPIKTRA [Suspect]
     Active Substance: DUVELISIB
     Indication: HODGKIN^S DISEASE NODULAR SCLEROSIS
     Dosage: 15 MG, BID
     Route: 048
     Dates: start: 20190926, end: 20191021

REACTIONS (2)
  - Gingival bleeding [Unknown]
  - Tooth extraction [Unknown]

NARRATIVE: CASE EVENT DATE: 20191021
